FAERS Safety Report 6311470-6 (Version None)
Quarter: 2009Q3

REPORT INFORMATION
  Report Type: 
  Country: None (occurrence: None)
  Receive Date: 20090817
  Receipt Date: 20090731
  Transmission Date: 20100115
  Serious: No
  Sender: FDA-Public Use
  Company Number: US-BAYER-200927116NA

PATIENT
  Age: 56 Year
  Sex: Male

DRUGS (3)
  1. LEVITRA [Suspect]
     Indication: ERECTILE DYSFUNCTION
     Dosage: UNIT DOSE: 20 MG
  2. TEGRETOL [Concomitant]
  3. DIVALPROEX SODIUM [Concomitant]

REACTIONS (1)
  - ERECTILE DYSFUNCTION [None]
